FAERS Safety Report 4645884-7 (Version None)
Quarter: 2005Q2

REPORT INFORMATION
  Report Type: 
  Country: None (occurrence: None)
  Receive Date: 20050427
  Receipt Date: 20050418
  Transmission Date: 20051028
  Serious: Yes (Hospitalization)
  Sender: FDA-Public Use
  Company Number: US-JNJFOC-20050302483

PATIENT
  Sex: Female
  Weight: 73.03 kg

DRUGS (8)
  1. DURAGESIC-100 [Suspect]
     Route: 062
  2. DURAGESIC-100 [Suspect]
     Route: 062
  3. FENTANYL [Suspect]
     Route: 062
     Dates: start: 20050221
  4. COUMADIN [Concomitant]
     Indication: ANTICOAGULANT THERAPY
     Route: 049
     Dates: start: 20040621
  5. ACTIQ [Concomitant]
     Dosage: AS NECESSARY
     Route: 049
  6. TOPROL-XL [Concomitant]
     Indication: HYPERTENSION
     Route: 049
     Dates: start: 20020101
  7. LIPITOR [Concomitant]
     Route: 049
     Dates: start: 20040101
  8. ZESTRIL [Concomitant]
     Route: 049
     Dates: start: 20030101

REACTIONS (8)
  - ANOREXIA [None]
  - ANXIETY [None]
  - CHILLS [None]
  - CONSTIPATION [None]
  - FATIGUE [None]
  - FEELING ABNORMAL [None]
  - HYPERHIDROSIS [None]
  - WEIGHT DECREASED [None]
